FAERS Safety Report 7727780-1 (Version None)
Quarter: 2011Q3

REPORT INFORMATION
  Report Type: 
  Country: None (occurrence: None)
  Receive Date: 20110904
  Receipt Date: 20110822
  Transmission Date: 20111222
  Serious: Yes (Hospitalization, Other)
  Sender: FDA-Public Use
  Company Number: US-ASTRAZENECA-2011SE50649

PATIENT
  Age: 80 Year
  Sex: Male

DRUGS (7)
  1. ANGIOTENSIN CONVERTING ENZYME INHIBITOR [Concomitant]
  2. FENTANYL-100 [Suspect]
     Dosage: 400 MICROGRAM
     Route: 008
  3. DIURETICS [Concomitant]
  4. STATIN [Concomitant]
  5. SAXAGLIPTIN CODE NOT BROKEN [Suspect]
     Indication: TYPE 2 DIABETES MELLITUS
     Route: 065
  6. ADRENALIN IN OIL INJ [Suspect]
     Dosage: 400 MICROGRAM
     Route: 008
  7. ROPIVACAINE HCL [Suspect]
     Dosage: 400 MICROGRAM
     Route: 008

REACTIONS (3)
  - HAEMORRHAGE [None]
  - HYPOTENSION [None]
  - THROMBOCYTOPENIA [None]
